FAERS Safety Report 9813716 (Version 1)
Quarter: 2014Q1

REPORT INFORMATION
  Report Type: Report from Study
  Country: DE (occurrence: DE)
  Receive Date: 20140113
  Receipt Date: 20140113
  Transmission Date: 20141002
  Serious: Yes (Hospitalization)
  Sender: FDA-Public Use
  Company Number: DE-BRISTOL-MYERS SQUIBB COMPANY-19986751

PATIENT
  Age: 64 Year
  Sex: Male

DRUGS (6)
  1. CETUXIMAB [Suspect]
     Indication: MALIGNANT NEOPLASM OF UNKNOWN PRIMARY SITE
     Route: 042
     Dates: start: 20131024
  2. CARBOPLATIN [Suspect]
     Indication: MALIGNANT NEOPLASM OF UNKNOWN PRIMARY SITE
     Route: 042
     Dates: start: 20131024
  3. PACLITAXEL [Suspect]
     Indication: MALIGNANT NEOPLASM OF UNKNOWN PRIMARY SITE
     Route: 042
     Dates: start: 20131024
  4. DEXAMETHASONE [Concomitant]
     Indication: PROPHYLAXIS
     Route: 048
  5. TAPENTADOL HYDROCHLORIDE [Concomitant]
     Indication: PAIN
     Dosage: RETARD
     Route: 048
     Dates: start: 2013
  6. PANTOZOL [Concomitant]
     Indication: PROPHYLAXIS
     Route: 048
     Dates: start: 2013

REACTIONS (3)
  - Infection [Unknown]
  - Abdominal pain [Unknown]
  - Pain in extremity [Unknown]
